FAERS Safety Report 5115014-6 (Version None)
Quarter: 2006Q3

REPORT INFORMATION
  Report Type: 
  Country: None (occurrence: None)
  Receive Date: 20060925
  Receipt Date: 20060925
  Transmission Date: 20061208
  Serious: Yes (Hospitalization)
  Sender: FDA-Public Use
  Company Number: None

PATIENT
  Sex: Female
  Weight: 49.8957 kg

DRUGS (5)
  1. CETUXIMAB [Suspect]
     Indication: NEOPLASM MALIGNANT
     Dosage: 392.5 MG, WEEKLY, IV
     Route: 042
     Dates: start: 20060412, end: 20060626
  2. CETUXIMAB [Suspect]
     Indication: NEOPLASM MALIGNANT
     Dosage: 392.5 MG, WEEKLY, IV
     Route: 042
     Dates: start: 20060911
  3. PACLITAXEL [Suspect]
     Indication: NEOPLASM MALIGNANT
     Dosage: 62.8MG , WEEKLY, IV
     Route: 042
     Dates: start: 20060515, end: 20060626
  4. CARBOPLATIN [Suspect]
     Indication: NEOPLASM MALIGNANT
     Dosage: 127 MG , WEEKLY IV
     Route: 042
     Dates: start: 20060515, end: 20060626
  5. RADIATION 7500CGY X 5WEEKS/2160-2700 WEEKS 6-8 [Suspect]
     Indication: NEOPLASM MALIGNANT
     Dates: start: 20060515, end: 20060720

REACTIONS (2)
  - LUNG INFECTION [None]
  - PNEUMONIA [None]
